FAERS Safety Report 15933659 (Version 2)
Quarter: 2019Q3

REPORT INFORMATION
  Report Type: Report from Study
  Country: US (occurrence: US)
  Receive Date: 20190207
  Receipt Date: 20190820
  Transmission Date: 20191004
  Serious: No
  Sender: FDA-Public Use
  Company Number: PHEH2019US005253

PATIENT
  Age: 63 Year
  Sex: Male

DRUGS (4)
  1. DICLOFENAC SODIUM. [Concomitant]
     Active Substance: DICLOFENAC SODIUM
     Indication: PRODUCT USED FOR UNKNOWN INDICATION
     Route: 065
  2. MELOXICAM. [Concomitant]
     Active Substance: MELOXICAM
     Indication: PRODUCT USED FOR UNKNOWN INDICATION
     Route: 065
  3. COSENTYX [Suspect]
     Active Substance: SECUKINUMAB
     Indication: PSORIASIS
     Dosage: 300 MG, QW AT WEEKS 0, 1, 2, 3 AND 4 THEN ONCE EVERY 4 WEEKS THEREAFTER
     Route: 058
     Dates: start: 20190108
  4. OXAZEPAM. [Concomitant]
     Active Substance: OXAZEPAM
     Indication: PRODUCT USED FOR UNKNOWN INDICATION
     Route: 065

REACTIONS (7)
  - Erythema [Not Recovered/Not Resolved]
  - Diarrhoea [Unknown]
  - Macule [Unknown]
  - Throat clearing [Unknown]
  - Therapeutic product effect incomplete [Unknown]
  - Rash [Not Recovered/Not Resolved]
  - Sinus disorder [Unknown]
